FAERS Safety Report 7600907-8 (Version None)
Quarter: 2011Q3

REPORT INFORMATION
  Report Type: 
  Country: None (occurrence: None)
  Receive Date: 20110701
  Receipt Date: 20100525
  Transmission Date: 20111222
  Serious: Yes (Hospitalization)
  Sender: FDA-Public Use
  Company Number: GXBR2010US01067

PATIENT
  Age: 10 Year
  Sex: Male
  Weight: 29.2 kg

DRUGS (5)
  1. OMNITROPE [Suspect]
     Indication: GROWTH HORMONE DEFICIENCY
     Dosage: 1.4 MG, QD, INJECTION NOS
     Route: 042
     Dates: start: 20100408
  2. ADVAIR DISKUS (FLUTICASONE PROPIONATE, SALMETEROL XINAFOATE) [Concomitant]
  3. ZYRTEC [Concomitant]
  4. SINGULAIR [Concomitant]
  5. PROBIOTICS (MICROORGANISMS W/PROBIOTIC ACTION) (NO INGREDIENTS/SUBSTAN [Concomitant]

REACTIONS (6)
  - TYPE 1 DIABETES MELLITUS [None]
  - BLOOD KETONE BODY [None]
  - DYSARTHRIA [None]
  - PYREXIA [None]
  - VOMITING [None]
  - BLOOD GLUCOSE INCREASED [None]
